FAERS Safety Report 20065357 (Version 1)
Quarter: 2021Q4

REPORT INFORMATION
  Report Type: Spontaneous
  Country: US (occurrence: US)
  Receive Date: 20211113
  Receipt Date: 20211113
  Transmission Date: 20220303
  Serious: No
  Sender: FDA-Public Use
  Company Number: US-JNJFOC-20211109601

PATIENT

DRUGS (1)
  1. VELETRI [Suspect]
     Active Substance: EPOPROSTENOL
     Indication: COVID-19
     Route: 055

REACTIONS (4)
  - Device issue [Unknown]
  - Incorrect route of product administration [Unknown]
  - Off label use [Unknown]
  - Product use in unapproved indication [Unknown]
